FAERS Safety Report 4492394-6 (Version None)
Quarter: 2004Q4

REPORT INFORMATION
  Report Type: 
  Country: None (occurrence: None)
  Receive Date: 20041102
  Receipt Date: 20041102
  Transmission Date: 20050328
  Serious: Yes (Other)
  Sender: FDA-Public Use
  Company Number: None

PATIENT
  Age: 56 Year
  Sex: Female
  Weight: 90.7194 kg

DRUGS (5)
  1. CYTOXAN [Suspect]
     Indication: BREAST CANCER
     Dosage: DAY 1 AND DAY 8 Q 4 WKS X 6 CYCLES
     Dates: start: 20020530, end: 20021024
  2. EPIRUBICIN [Suspect]
     Indication: BREAST CANCER
     Dosage: DAY 1 AND DAY 8 Q 4 WKS X 6 CYCLES
     Dates: start: 20020530, end: 20021024
  3. FLUOROURACIL [Suspect]
     Indication: BREAST CANCER
     Dosage: DAY 1 AND DAY 8 Q 4 WKS X 6 CYCLES
     Dates: start: 20020530, end: 20021024
  4. TAMOXIFEN [Concomitant]
  5. FOSAMAX [Concomitant]

REACTIONS (2)
  - B-CELL LYMPHOMA STAGE IV [None]
  - BONE MARROW DISORDER [None]
